FAERS Safety Report 5995237-4 (Version None)
Quarter: 2008Q4

REPORT INFORMATION
  Report Type: 
  Country: None (occurrence: None)
  Receive Date: 20081212
  Receipt Date: 20081029
  Transmission Date: 20090506
  Serious: No
  Sender: FDA-Public Use
  Company Number: US-ABBOTT-08P-163-0477561-00

PATIENT
  Sex: Female
  Weight: 110.32 kg

DRUGS (20)
  1. HUMIRA [Suspect]
     Indication: CROHN'S DISEASE
     Dosage: 160MG LOADING DOSE
     Route: 050
     Dates: start: 20080908, end: 20080908
  2. HUMIRA [Suspect]
     Dosage: 80MG LOADING DOSE
     Route: 050
     Dates: start: 20080922, end: 20080922
  3. HUMIRA [Suspect]
     Route: 050
     Dates: end: 20081006
  4. IBANDRONATE SODIUM [Concomitant]
     Indication: OSTEOPOROSIS
     Route: 048
     Dates: start: 20080912
  5. ESTRADIOL [Concomitant]
     Indication: HORMONE REPLACEMENT THERAPY
     Route: 048
     Dates: start: 20060101
  6. EZETIMIBE [Concomitant]
     Indication: DRUG USE FOR UNKNOWN INDICATION
     Route: 048
     Dates: start: 20060101
  7. DICYCLOMINE HCL [Concomitant]
     Indication: CROHN'S DISEASE
     Route: 048
     Dates: start: 20070101
  8. PROPRANOLOL [Concomitant]
     Indication: DRUG USE FOR UNKNOWN INDICATION
     Route: 048
     Dates: start: 20050101
  9. NABLEX [Concomitant]
     Indication: HYPERTONIC BLADDER
     Route: 048
     Dates: start: 20070101
  10. TRAMADOL HYDROCHLORIDE [Concomitant]
     Indication: BACK PAIN
     Route: 048
     Dates: start: 20040101
  11. NAPROXEN SODIUM [Concomitant]
     Indication: BACK PAIN
     Route: 048
     Dates: start: 20080601
  12. ALPRAZOLAM [Concomitant]
     Indication: SLEEP DISORDER
     Dosage: 2 TABS AT BEDTIME
     Route: 048
     Dates: start: 20030101
  13. ALPRAZOLAM [Concomitant]
     Indication: RESTLESS LEGS SYNDROME
  14. LEVOTHYROXINE SODIUM [Concomitant]
     Indication: THYROID DISORDER
     Route: 048
     Dates: start: 20070101
  15. ATORVASTATIN CALCIUM [Concomitant]
     Indication: BLOOD CHOLESTEROL INCREASED
     Route: 048
     Dates: start: 20030101
  16. RABEPRAZOLE SODIUM [Concomitant]
     Indication: DRUG USE FOR UNKNOWN INDICATION
     Route: 048
     Dates: start: 20030101
  17. MORPHINE SULFATE [Concomitant]
     Indication: BACK PAIN
     Route: 048
     Dates: start: 20060101
  18. MORPHINE SULFATE [Concomitant]
     Route: 048
     Dates: start: 20060101
  19. MONTELUKAST SODIUM [Concomitant]
     Indication: ASTHMA
     Route: 048
     Dates: start: 20050101
  20. DULOXETINE HYDROCHLORIDE [Concomitant]
     Indication: DEPRESSION
     Route: 048
     Dates: start: 20060101

REACTIONS (8)
  - ABDOMINAL DISTENSION [None]
  - FLUSHING [None]
  - HOT FLUSH [None]
  - HUNGER [None]
  - HYPOAESTHESIA [None]
  - STOMATITIS [None]
  - VOMITING [None]
  - WEIGHT INCREASED [None]
